FAERS Safety Report 13225257 (Version 1)
Quarter: 2017Q1

REPORT INFORMATION
  Report Type: Spontaneous
  Country: US (occurrence: US)
  Receive Date: 20170213
  Receipt Date: 20170213
  Transmission Date: 20170428
  Serious: Yes (Other)
  Sender: FDA-Public Use
  Company Number: US-ASTELLAS-2017US004890

PATIENT
  Age: 60 Year
  Sex: Female

DRUGS (5)
  1. TRIMETHOPRIM SULFAMETHOXAZOLE [Concomitant]
     Active Substance: SULFAMETHOXAZOLE\TRIMETHOPRIM
     Indication: PRODUCT USED FOR UNKNOWN INDICATION
     Dosage: UNK UNK, UNKNOWN FREQ.
     Route: 065
  2. SEVELAMER [Suspect]
     Active Substance: SEVELAMER
     Dosage: UNK, UNKNOWN FREQ.
     Route: 065
  3. SIROLIMUS. [Concomitant]
     Active Substance: SIROLIMUS
     Indication: PRODUCT USED FOR UNKNOWN INDICATION
     Dosage: UNK UNK, UNKNOWN FREQ.
     Route: 065
  4. TACROLIMUS. [Suspect]
     Active Substance: TACROLIMUS
     Indication: LUNG TRANSPLANT
     Dosage: UNK UNK, UNKNOWN FREQ.
     Route: 065
  5. SEVELAMER [Suspect]
     Active Substance: SEVELAMER
     Indication: PRODUCT USED FOR UNKNOWN INDICATION
     Dosage: UNK, UNKNOWN FREQ.
     Route: 065

REACTIONS (3)
  - Crystal deposit intestine [Unknown]
  - Off label use [Unknown]
  - Proctitis [Unknown]
